FAERS Safety Report 25507647 (Version 1)
Quarter: 2025Q3

REPORT INFORMATION
  Report Type: Spontaneous
  Country: EU (occurrence: EU)
  Receive Date: 20250703
  Receipt Date: 20250703
  Transmission Date: 20251020
  Serious: Yes (Other)
  Sender: ASTELLAS
  Company Number: EU-ASTELLAS-2022US009967

PATIENT
  Age: 53 Year
  Sex: Male
  Weight: 61 kg

DRUGS (8)
  1. TACROLIMUS [Suspect]
     Active Substance: TACROLIMUS
     Indication: Renal transplant
     Dosage: 1 MG, ONCE DAILY (AT THE MORNING DAILY)
     Route: 048
     Dates: start: 201111
  2. PREDNISOLONE [Concomitant]
     Active Substance: PREDNISOLONE
     Indication: Renal disorder
     Dosage: 5 MG, ONCE DAILY (1-0-0)?ONGOING
     Route: 065
     Dates: start: 2011
  3. EVEROLIMUS [Concomitant]
     Active Substance: EVEROLIMUS
     Indication: Product used for unknown indication
     Route: 065
  4. ATORVASTATIN [Concomitant]
     Active Substance: ATORVASTATIN
     Indication: Blood cholesterol abnormal
     Dosage: 20 MG, ONCE DAILY (0-0-1)?ONGOING
     Route: 065
     Dates: start: 2011
  5. RAMIPRIL [Concomitant]
     Active Substance: RAMIPRIL
     Indication: Blood pressure measurement
     Dosage: 2.5 MG, TWICE DAILY (1-0-1)?ONGOING
     Route: 065
     Dates: start: 2021
  6. METOPROLOL [Concomitant]
     Active Substance: METOPROLOL
     Indication: Blood pressure measurement
     Dosage: 95 MG, ONCE DAILY (1-0-0)?ONGOING
     Route: 065
     Dates: start: 2011
  7. CERTICAN [Concomitant]
     Active Substance: EVEROLIMUS
     Indication: Immunosuppression
     Dosage: 0.5 MG, TWICE DAILY (1-0-1)?ONGOING
     Route: 065
     Dates: start: 2016
  8. LERCANIDIPINE [Concomitant]
     Active Substance: LERCANIDIPINE
     Indication: Blood pressure measurement
     Dosage: 10 MG, TWICE DAILY (1-0-1)?ONGOING
     Route: 065
     Dates: start: 2017

REACTIONS (9)
  - Retinal dystrophy [Not Recovered/Not Resolved]
  - Type 2 diabetes mellitus [Unknown]
  - Blindness unilateral [Not Recovered/Not Resolved]
  - Visual field defect [Not Recovered/Not Resolved]
  - Visual impairment [Not Recovered/Not Resolved]
  - Hypoacusis [Not Recovered/Not Resolved]
  - Depression [Not Recovered/Not Resolved]
  - Visual acuity reduced [Recovering/Resolving]
  - Maculopathy [Unknown]

NARRATIVE: CASE EVENT DATE: 20200101
